FAERS Safety Report 20656305 (Version 1)
Quarter: 2022Q1

REPORT INFORMATION
  Report Type: Other
  Country: CA (occurrence: CA)
  Receive Date: 20220331
  Receipt Date: 20220331
  Transmission Date: 20220423
  Serious: Yes (Other)
  Sender: FDA-Public Use
  Company Number: CA-CELLTRION INC.-2021CA019101

PATIENT

DRUGS (8)
  1. RITUXIMAB [Suspect]
     Active Substance: RITUXIMAB
     Indication: Pemphigoid
     Dosage: 1000 MG
     Route: 042
  2. RITUXIMAB [Suspect]
     Active Substance: RITUXIMAB
     Dosage: 1000 MG
     Route: 042
  3. RITUXIMAB [Suspect]
     Active Substance: RITUXIMAB
     Dosage: 1 DOSAGE FORM
     Route: 042
  4. RITUXIMAB [Suspect]
     Active Substance: RITUXIMAB
     Dosage: 1 DOSAGE FORM
     Route: 042
  5. RITUXIMAB [Suspect]
     Active Substance: RITUXIMAB
     Dosage: UNK
     Route: 065
  6. ACRIVASTINE [Suspect]
     Active Substance: ACRIVASTINE
     Indication: Product used for unknown indication
     Dosage: 50 MILLIGRAM
     Route: 048
  7. METHYLPREDNISOLONE SODIUM SUCCINATE [Suspect]
     Active Substance: METHYLPREDNISOLONE SODIUM SUCCINATE
     Indication: Product used for unknown indication
     Dosage: 100 MILLIGRAM
     Route: 042
  8. TYLENOL [Suspect]
     Active Substance: ACETAMINOPHEN
     Indication: Product used for unknown indication
     Dosage: 650 MILLIGRAM
     Route: 048

REACTIONS (13)
  - Lethargy [Unknown]
  - Lymph node pain [Unknown]
  - Cardiac failure chronic [Unknown]
  - Dyspnoea [Unknown]
  - Fatigue [Unknown]
  - Infection [Unknown]
  - Lymphadenopathy [Unknown]
  - Malaise [Unknown]
  - Oropharyngeal pain [Unknown]
  - Pain [Unknown]
  - Product use issue [Unknown]
  - Off label use [Unknown]
  - Off label use [Unknown]
